FAERS Safety Report 6402605-5 (Version None)
Quarter: 2009Q4

REPORT INFORMATION
  Report Type: 
  Country: None (occurrence: None)
  Receive Date: 20091009
  Receipt Date: 20090930
  Transmission Date: 20100525
  Serious: Yes (Death)
  Sender: FDA-Public Use
  Company Number: 007741

PATIENT
  Age: 60 Year
  Sex: Male

DRUGS (3)
  1. BUSULFEX [Suspect]
     Indication: CORD BLOOD TRANSPLANT THERAPY
     Route: 042
  2. FLUDARABINE PHOSPHATE [Concomitant]
  3. MELPHALAN (MELPHALAN) [Concomitant]

REACTIONS (5)
  - ACUTE RESPIRATORY FAILURE [None]
  - HYPOXIA [None]
  - PNEUMONIA BACTERIAL [None]
  - PULMONARY ALVEOLAR HAEMORRHAGE [None]
  - STENOTROPHOMONAS SEPSIS [None]
